FAERS Safety Report 8409217-2 (Version None)
Quarter: 2012Q2

REPORT INFORMATION
  Report Type: 
  Country: None (occurrence: None)
  Receive Date: 20120604
  Receipt Date: 20120529
  Transmission Date: 20120825
  Serious: Yes (Other)
  Sender: FDA-Public Use
  Company Number: BR-BAYER-2012-053407

PATIENT
  Age: 60 Year
  Sex: Male

DRUGS (5)
  1. DICLOFENAC SODIUM [Concomitant]
     Indication: SPINAL PAIN
     Dosage: UNK
     Route: 048
     Dates: start: 20100101
  2. BACLOFEN [Concomitant]
     Indication: PREMEDICATION
     Dosage: UNK
     Route: 048
     Dates: start: 20091101
  3. LEVOTHYROXINE SODIUM [Concomitant]
     Indication: THYROID DISORDER
     Dosage: 80 MG, QD
     Route: 048
     Dates: start: 20101101
  4. BETASERON [Suspect]
     Indication: RELAPSING-REMITTING MULTIPLE SCLEROSIS
     Dosage: 1 ML, QOD
     Route: 058
     Dates: start: 20100701
  5. ZOLPIDEM [Concomitant]
     Indication: INSOMNIA
     Dosage: 12.5 MG, QD
     Route: 048
     Dates: start: 20120509

REACTIONS (3)
  - QUADRIPLEGIA [None]
  - MALAISE [None]
  - DYSSTASIA [None]
